FAERS Safety Report 8777725 (Version 1)
Quarter: 2012Q4

REPORT INFORMATION
  Report Type: Report from Study
  Country: US (occurrence: US)
  Receive Date: 20120912
  Receipt Date: 20120912
  Transmission Date: 20130627
  Serious: No
  Sender: FDA-Public Use
  Company Number: US-VERTEX PHARMACEUTICAL INC.-AE-2012-004444

PATIENT
  Age: 60 Year
  Sex: Male

DRUGS (4)
  1. INCIVEK [Suspect]
     Indication: HEPATITIS C
     Route: 048
     Dates: start: 20120301
  2. PEG INTRON [Concomitant]
     Indication: HEPATITIS C
     Route: 058
     Dates: start: 20120301
  3. RIBAVIRIN [Concomitant]
     Indication: HEPATITIS C
     Route: 048
     Dates: start: 20120301
  4. RIBAVIRIN [Concomitant]
     Route: 048

REACTIONS (9)
  - Depression [Not Recovered/Not Resolved]
  - Dysarthria [Not Recovered/Not Resolved]
  - Localised infection [Not Recovered/Not Resolved]
  - Pyrexia [Not Recovered/Not Resolved]
  - Decreased appetite [Unknown]
  - Weight decreased [Not Recovered/Not Resolved]
  - Myalgia [Unknown]
  - Asthenia [Not Recovered/Not Resolved]
  - Anaemia [Not Recovered/Not Resolved]
